FAERS Safety Report 8325330-2 (Version None)
Quarter: 2012Q2

REPORT INFORMATION
  Report Type: 
  Country: None (occurrence: None)
  Receive Date: 20120427
  Receipt Date: 20120124
  Transmission Date: 20120825
  Serious: Yes (Hospitalization)
  Sender: FDA-Public Use
  Company Number: 2012SP020795

PATIENT
  Age: 52 Year
  Sex: Female
  Weight: 60 kg

DRUGS (14)
  1. OXYBUTYNIN [Concomitant]
  2. SUBOXONE [Concomitant]
  3. GS-9451 [Suspect]
     Indication: HEPATITIS C
     Dosage: 200MG, QD,PO
     Route: 048
  4. TYLENOL (CAPLET) [Concomitant]
  5. WELLBUTRIN [Concomitant]
  6. DILTIAZEM [Concomitant]
  7. NEXIUM [Concomitant]
  8. RIBAVIRIN [Suspect]
     Indication: HEPATITIS C
     Dosage: 1000 MG;BID;PO
     Route: 048
     Dates: start: 20120106, end: 20120122
  9. LISINOPRIL [Concomitant]
  10. PLACEBO [Suspect]
     Indication: HEPATITIS C
     Dosage: 30MG,BID,PO
     Route: 048
     Dates: start: 20120106, end: 20120305
  11. ZANTAC [Concomitant]
  12. GS-5885 [Suspect]
     Indication: HEPATITIS C
     Dosage: 90 MG;QD;PO
     Route: 048
     Dates: start: 20120106, end: 20120305
  13. TRAZODONE HCL [Concomitant]
  14. IBUPROFEN TABLETS [Concomitant]

REACTIONS (12)
  - HEADACHE [None]
  - PULMONARY FIBROSIS [None]
  - DYSPNOEA [None]
  - CHEST DISCOMFORT [None]
  - ANXIETY [None]
  - FATIGUE [None]
  - MUSCULOSKELETAL DISCOMFORT [None]
  - DIZZINESS [None]
  - ATELECTASIS [None]
  - ANAEMIA [None]
  - URINE LEUKOCYTE ESTERASE POSITIVE [None]
  - VIROLOGIC FAILURE [None]
